FAERS Safety Report 13354891 (Version 2)
Quarter: 2017Q2

REPORT INFORMATION
  Report Type: Spontaneous
  Country: JP (occurrence: JP)
  Receive Date: 20170321
  Receipt Date: 20170403
  Transmission Date: 20170830
  Serious: Yes (Hospitalization)
  Sender: FDA-Public Use
  Company Number: JP-JNJFOC-20170317973

PATIENT
  Sex: Female

DRUGS (1)
  1. SIMPONI [Suspect]
     Active Substance: GOLIMUMAB
     Indication: RHEUMATOID ARTHRITIS
     Route: 058

REACTIONS (1)
  - Plasma cell myeloma [Recovered/Resolved]
